FAERS Safety Report 21362829 (Version 2)
Quarter: 2022Q3

REPORT INFORMATION
  Report Type: Spontaneous
  Country: NL (occurrence: None)
  Receive Date: 20220922
  Receipt Date: 20220927
  Transmission Date: 20221027
  Serious: Yes (Life-Threatening, Hospitalization, Other)
  Sender: FDA-Public Use
  Company Number: 2022A319667

PATIENT
  Age: 41 Year
  Sex: Female

DRUGS (4)
  1. QUETIAPINE [Suspect]
     Active Substance: QUETIAPINE
     Dosage: 30 TABLETS X 25MG
     Route: 048
  2. VENLAFAXINE [Suspect]
     Active Substance: VENLAFAXINE HYDROCHLORIDE
     Dosage: 170 TABLETS X 75 MG
     Route: 048
  3. DESLORATADINE [Suspect]
     Active Substance: DESLORATADINE
     Dosage: 8 TABLETS X 5 MILLIGRAM
     Route: 048
  4. TOPIRAMATE [Suspect]
     Active Substance: TOPIRAMATE
     Dosage: 510 TABLETS X 50 MG
     Route: 048

REACTIONS (6)
  - Suicide attempt [Unknown]
  - Toxicity to various agents [Unknown]
  - Coma [Unknown]
  - Respiratory failure [Unknown]
  - Hypotension [Unknown]
  - Seizure [Unknown]
